FAERS Safety Report 20726735 (Version 1)
Quarter: 2022Q2

REPORT INFORMATION
  Report Type: Spontaneous
  Country: US (occurrence: US)
  Receive Date: 20220419
  Receipt Date: 20220419
  Transmission Date: 20220721
  Serious: Yes (Other)
  Sender: FDA-Public Use
  Company Number: US-JAZZ-2022-US-000087

PATIENT
  Age: 20 Year
  Sex: Female
  Weight: 105 kg

DRUGS (3)
  1. XYREM [Suspect]
     Active Substance: SODIUM OXYBATE
     Indication: Product used for unknown indication
     Dosage: 4 G AT 9 PM AND 2.5 G FOR 1 YEAR
  2. XYREM [Suspect]
     Active Substance: SODIUM OXYBATE
     Dosage: 5 G INSTEAD OF 4 G BY ACCIDENT
  3. BACLOFEN [Concomitant]
     Active Substance: BACLOFEN
     Indication: Product used for unknown indication

REACTIONS (2)
  - Depressed level of consciousness [Recovered/Resolved]
  - Incorrect dosage administered [Unknown]
